FAERS Safety Report 8094401-0 (Version None)
Quarter: 2012Q1

REPORT INFORMATION
  Report Type: 
  Country: None (occurrence: None)
  Receive Date: 20120130
  Receipt Date: 20120120
  Transmission Date: 20120608
  Serious: Yes (Other)
  Sender: FDA-Public Use
  Company Number: US-BAYER-2011-085720

PATIENT
  Age: 27 Year
  Sex: Female
  Weight: 67 kg

DRUGS (8)
  1. AZITHROMYCIN [Concomitant]
     Indication: ANTIBIOTIC THERAPY
     Dosage: UNK
     Dates: start: 20090101
  2. ZITHROMAX [Concomitant]
     Indication: ANTIBIOTIC THERAPY
     Dosage: UNK
     Dates: start: 20090101
  3. XANAX [Concomitant]
  4. MECLIZINE [Concomitant]
     Dosage: 12.5 MG, UNK
     Dates: start: 20090611
  5. YASMIN [Suspect]
     Indication: PREMENSTRUAL SYNDROME
  6. IBUPROFEN (ADVIL) [Concomitant]
     Dosage: UNK UNK, PRN
  7. YASMIN [Suspect]
     Indication: ORAL CONTRACEPTION
     Dosage: UNK
     Dates: start: 20060701, end: 20090901
  8. ACETAMINOPHEN [Concomitant]
     Dosage: UNK UNK, PRN

REACTIONS (4)
  - MENTAL DISORDER [None]
  - SUPERIOR SAGITTAL SINUS THROMBOSIS [None]
  - PAIN [None]
  - INJURY [None]
